FAERS Safety Report 6455679-X (Version None)
Quarter: 2009Q4

REPORT INFORMATION
  Report Type: 
  Country: None (occurrence: None)
  Receive Date: 20091125
  Receipt Date: 20091031
  Transmission Date: 20100525
  Serious: No
  Sender: FDA-Public Use
  Company Number: US-ABBOTT-09P-163-0606288-00

PATIENT
  Sex: Male

DRUGS (2)
  1. SIMCOR [Suspect]
     Indication: HYPERCHOLESTEROLAEMIA
     Dosage: 500MG/20MG
     Route: 048
     Dates: start: 20090915
  2. SIMCOR [Suspect]
     Dosage: 500MG/20MG
     Dates: start: 20090701, end: 20090901

REACTIONS (4)
  - CHOKING [None]
  - CHROMATURIA [None]
  - MUSCULOSKELETAL STIFFNESS [None]
  - NECK PAIN [None]
